FAERS Safety Report 7810570-9 (Version None)
Quarter: 2011Q4

REPORT INFORMATION
  Report Type: 
  Country: None (occurrence: None)
  Receive Date: 20111013
  Receipt Date: 20111003
  Transmission Date: 20120403
  Serious: Yes (Hospitalization, Other)
  Sender: FDA-Public Use
  Company Number: US-BIOGENIDEC-2011BI037638

PATIENT
  Sex: Female

DRUGS (2)
  1. AVONEX [Suspect]
     Indication: MULTIPLE SCLEROSIS
     Route: 030
     Dates: start: 20040831, end: 20071003
  2. AVONEX [Suspect]
     Route: 030
     Dates: start: 20110816, end: 20110830

REACTIONS (6)
  - MYOCARDIAL INFARCTION [None]
  - HEPATITIS [None]
  - CONVULSION [None]
  - COMA [None]
  - HEPATIC FAILURE [None]
  - GRAND MAL CONVULSION [None]
